FAERS Safety Report 15785958 (Version 3)
Quarter: 2021Q1

REPORT INFORMATION
  Report Type: Spontaneous
  Country: US (occurrence: US)
  Receive Date: 20190103
  Receipt Date: 20210104
  Transmission Date: 20210419
  Serious: No
  Sender: FDA-Public Use
  Company Number: US-SA-2018SA397659

PATIENT

DRUGS (1)
  1. DUPIXENT [Suspect]
     Active Substance: DUPILUMAB
     Indication: DERMATITIS ATOPIC
     Dosage: 300 MG, QOW
     Route: 058
     Dates: start: 201808

REACTIONS (4)
  - Eyelid irritation [Recovering/Resolving]
  - Skin papilloma [Unknown]
  - Eye irritation [Recovering/Resolving]
  - Urine calcium increased [Not Recovered/Not Resolved]

NARRATIVE: CASE EVENT DATE: 202012
